FAERS Safety Report 7562502-9 (Version None)
Quarter: 2011Q2

REPORT INFORMATION
  Report Type: 
  Country: None (occurrence: None)
  Receive Date: 20110614
  Receipt Date: 20110602
  Transmission Date: 20111010
  Serious: Yes (Hospitalization)
  Sender: FDA-Public Use
  Company Number: 2011SP025912

PATIENT
  Age: 49 Year
  Sex: Female

DRUGS (2)
  1. PEGINTERFERON ALFA-2B [Suspect]
     Indication: MALIGNANT MELANOMA
     Dosage: 6 MCG/KG; SC, 6 MCG/KG; SC
     Route: 058
     Dates: start: 20110522
  2. PEGINTERFERON ALFA-2B [Suspect]
     Indication: MALIGNANT MELANOMA
     Dosage: 6 MCG/KG; SC, 6 MCG/KG; SC
     Route: 058
     Dates: start: 20110513

REACTIONS (3)
  - WHITE BLOOD CELL COUNT DECREASED [None]
  - PLATELET COUNT DECREASED [None]
  - COLITIS [None]
